FAERS Safety Report 6406473-7 (Version None)
Quarter: 2009Q4

REPORT INFORMATION
  Report Type: 
  Country: None (occurrence: None)
  Receive Date: 20091015
  Receipt Date: 20091002
  Transmission Date: 20100525
  Serious: Yes (Other)
  Sender: FDA-Public Use
  Company Number: 231848K09USA

PATIENT
  Age: 33 Year
  Sex: Female

DRUGS (5)
  1. REBIF [Suspect]
     Indication: MULTIPLE SCLEROSIS
     Dosage: 44 MCG, 3 IN 1 WEEKS, SUBCUTANEOUS
     Route: 058
     Dates: start: 20021011
  2. IBUPROFEN [Concomitant]
  3. ACETAMINOPHEN [Concomitant]
  4. DEPO PROVERA (MEDROXYPROGESTERONE /00115201/) [Concomitant]
  5. NEXIUM [Concomitant]

REACTIONS (3)
  - DYSTONIA [None]
  - INTERVERTEBRAL DISC PROTRUSION [None]
  - ROAD TRAFFIC ACCIDENT [None]
